FAERS Safety Report 25390403 (Version 1)
Quarter: 2025Q2

REPORT INFORMATION
  Report Type: Spontaneous
  Country: US (occurrence: None)
  Receive Date: 20250603
  Receipt Date: 20250603
  Transmission Date: 20250716
  Serious: Yes (Hospitalization)
  Sender: FDA-CTU
  Company Number: None

PATIENT
  Age: 70 Year
  Sex: Male

DRUGS (4)
  1. FLUOROURACIL [Suspect]
     Active Substance: FLUOROURACIL
     Dates: start: 20250224
  2. Irinotecan Camptosar ( CPI - 280mg 04/22/2025 [Concomitant]
  3. Leucovorin calcium 750mg 04/22/2025 [Concomitant]
  4. Oxaliplatin Eloxatin 120 mg 04/22/2025 [Concomitant]

REACTIONS (10)
  - Nausea [None]
  - Decreased appetite [None]
  - Vomiting [None]
  - Constipation [None]
  - Weight decreased [None]
  - Hypophagia [None]
  - Cough [None]
  - Confusional state [None]
  - Pneumonia [None]
  - Aspiration [None]

NARRATIVE: CASE EVENT DATE: 20250601
